FAERS Safety Report 6004566-X (Version None)
Quarter: 2008Q4

REPORT INFORMATION
  Report Type: 
  Country: None (occurrence: None)
  Receive Date: 20081216
  Receipt Date: 20080411
  Transmission Date: 20090506
  Serious: No
  Sender: FDA-Public Use
  Company Number: US-BRISTOL-MYERS SQUIBB COMPANY-14147912

PATIENT
  Age: 6 Year
  Sex: Male

DRUGS (2)
  1. ABILIFY [Suspect]
     Indication: AUTISM
     Route: 048
     Dates: start: 20070501
  2. FOCALIN [Concomitant]
     Dosage: 5MG IN THE MORNING AND 2MG IN THE AFTERNOON
     Dates: start: 20070101

REACTIONS (1)
  - WEIGHT INCREASED [None]
